FAERS Safety Report 9840585 (Version 1)
Quarter: 2014Q1

REPORT INFORMATION
  Report Type: Spontaneous
  Country: US (occurrence: US)
  Receive Date: 20140124
  Receipt Date: 20140124
  Transmission Date: 20141002
  Serious: No
  Sender: FDA-Public Use
  Company Number: US-PFIZER INC-2014022043

PATIENT
  Age: 45 Year
  Sex: Female
  Weight: 54.42 kg

DRUGS (2)
  1. CHANTIX [Suspect]
     Indication: SMOKING CESSATION THERAPY
     Dosage: UNK
     Route: 048
  2. MORPHINE [Concomitant]
     Indication: PAIN
     Dosage: UNK

REACTIONS (2)
  - Feeling abnormal [Unknown]
  - Nausea [Unknown]
